FAERS Safety Report 12384857 (Version 1)
Quarter: 2016Q2

REPORT INFORMATION
  Report Type: Spontaneous
  Country: US (occurrence: None)
  Receive Date: 20160518
  Receipt Date: 20160518
  Transmission Date: 20160815
  Serious: No
  Sender: FDA-Public Use
  Company Number: None

PATIENT
  Age: 57 Year
  Sex: Female
  Weight: 82.56 kg

DRUGS (2)
  1. METOPROLOL SUCCINATE 100 MG [Suspect]
     Active Substance: METOPROLOL SUCCINATE
     Indication: CARDIAC DISORDER
     Route: 048
     Dates: start: 20140416, end: 20160416
  2. METOPROLOL SUCCINATE 100 MG [Suspect]
     Active Substance: METOPROLOL SUCCINATE
     Indication: BLOOD PRESSURE MEASUREMENT
     Route: 048
     Dates: start: 20140416, end: 20160416

REACTIONS (19)
  - Fibromyalgia [None]
  - Judgement impaired [None]
  - Bacterial infection [None]
  - Product packaging issue [None]
  - Depression [None]
  - Paraesthesia [None]
  - Activities of daily living impaired [None]
  - Abnormal behaviour [None]
  - Rash [None]
  - Pain [None]
  - Blood pressure increased [None]
  - Thinking abnormal [None]
  - Blister [None]
  - Arthropod bite [None]
  - Irritable bowel syndrome [None]
  - Anxiety [None]
  - Malaise [None]
  - Tremor [None]
  - Fear [None]

NARRATIVE: CASE EVENT DATE: 20160416
